FAERS Safety Report 7403663-1 (Version None)
Quarter: 2011Q2

REPORT INFORMATION
  Report Type: 
  Country: None (occurrence: None)
  Receive Date: 20110408
  Receipt Date: 20110325
  Transmission Date: 20111010
  Serious: Yes (Other)
  Sender: FDA-Public Use
  Company Number: PHHY2011US25407

PATIENT
  Age: 74 Year
  Sex: Female

DRUGS (5)
  1. AFINITOR [Suspect]
     Dosage: UNK
  2. ASPIRIN [Concomitant]
  3. ATENOLOL [Concomitant]
  4. DILTIAZEM [Concomitant]
  5. THYROID [Concomitant]

REACTIONS (10)
  - DYSPNOEA [None]
  - NASAL CONGESTION [None]
  - RENAL DISORDER [None]
  - COUGH [None]
  - VITAMIN B12 DECREASED [None]
  - FATIGUE [None]
  - FUNGAL INFECTION [None]
  - SWELLING [None]
  - SINUS DISORDER [None]
  - ABDOMINAL DISCOMFORT [None]
